FAERS Safety Report 4779774-6 (Version None)
Quarter: 2005Q3

REPORT INFORMATION
  Report Type: 
  Country: None (occurrence: None)
  Receive Date: 20050914
  Receipt Date: 20040908
  Transmission Date: 20060218
  Serious: Yes (Hospitalization, Other)
  Sender: FDA-Public Use
  Company Number: 163-20785-04020234

PATIENT
  Age: 50 Year
  Sex: Male

DRUGS (7)
  1. THALOMID [Suspect]
     Indication: SYSTEMIC LUPUS ERYTHEMATOSUS
     Dosage: 100 MG, DAILY, ORAL; 50 MG, DAILY, ORAL
     Route: 048
     Dates: start: 20040114, end: 20040201
  2. THALOMID [Suspect]
     Indication: SYSTEMIC LUPUS ERYTHEMATOSUS
     Dosage: 100 MG, DAILY, ORAL; 50 MG, DAILY, ORAL
     Route: 048
     Dates: start: 20040212, end: 20040309
  3. AZATHIOPRINE [Suspect]
     Dosage: UNKNOWN
     Route: 065
     Dates: end: 20040309
  4. GEMFIBROZIL [Suspect]
     Dosage: UNKNOWN
     Route: 065
     Dates: end: 20040309
  5. DILTIAZEM [Concomitant]
  6. COUMADIN [Concomitant]
  7. PREDNISONE [Concomitant]

REACTIONS (3)
  - DEEP VEIN THROMBOSIS [None]
  - LEUKOPENIA [None]
  - PARAESTHESIA [None]
